FAERS Safety Report 12651981 (Version 1)
Quarter: 2016Q3

REPORT INFORMATION
  Report Type: Report from Study
  Country: US (occurrence: US)
  Receive Date: 20160815
  Receipt Date: 20160815
  Transmission Date: 20161109
  Serious: Yes (Hospitalization)
  Sender: FDA-Public Use
  Company Number: US-ACTELION-A-US2016-140478

PATIENT
  Age: 86 Year
  Sex: Female

DRUGS (2)
  1. OPSUMIT [Suspect]
     Active Substance: MACITENTAN
     Indication: PULMONARY ARTERIAL HYPERTENSION
     Dosage: 10 MG, UNK
     Route: 048
     Dates: start: 20141121
  2. COUMADIN [Concomitant]
     Active Substance: WARFARIN SODIUM

REACTIONS (6)
  - Transfusion [Unknown]
  - Asthenia [Unknown]
  - Mineral supplementation [Unknown]
  - Haemoglobin decreased [Unknown]
  - Feeling abnormal [Unknown]
  - Haemorrhage [Unknown]
